FAERS Safety Report 12315992 (Version 1)
Quarter: 2016Q2

REPORT INFORMATION
  Report Type: Spontaneous
  Country: US (occurrence: US)
  Receive Date: 20160428
  Receipt Date: 20160428
  Transmission Date: 20160815
  Serious: Yes (Other)
  Sender: FDA-Public Use
  Company Number: US-IMPAX LABORATORIES, INC-IMP_07898_2014

PATIENT
  Age: 31 Year
  Sex: Female

DRUGS (2)
  1. BUPROPION XL [Suspect]
     Active Substance: BUPROPION
     Indication: DEPRESSION
     Dosage: 450 MG, DAILY
     Route: 048
     Dates: start: 20140729, end: 20140801
  2. ESTRADIOL. [Concomitant]
     Active Substance: ESTRADIOL
     Indication: HORMONE REPLACEMENT THERAPY
     Dosage: 4 MG, DAILY
     Route: 048

REACTIONS (10)
  - Headache [Recovered/Resolved]
  - Product substitution issue [Unknown]
  - Suicidal ideation [Recovered/Resolved]
  - Product quality issue [Unknown]
  - Decreased appetite [Recovered/Resolved]
  - Depression [Recovered/Resolved]
  - Paranoia [Recovered/Resolved]
  - Confusional state [Recovered/Resolved]
  - Tremor [Recovered/Resolved]
  - Anxiety [Recovered/Resolved]

NARRATIVE: CASE EVENT DATE: 20140801
